FAERS Safety Report 9259034 (Version 1)
Quarter: 2013Q2

REPORT INFORMATION
  Report Type: Other
  Country: CA (occurrence: CA)
  Receive Date: 20130426
  Receipt Date: 20130426
  Transmission Date: 20140414
  Serious: Yes (Other)
  Sender: FDA-Public Use
  Company Number: CA-NAPPMUNDI-CAN-2013-0003817

PATIENT
  Sex: Male
  Weight: 108.9 kg

DRUGS (5)
  1. OXYNEO 40 MG [Suspect]
     Indication: OSTEOARTHRITIS
     Dosage: 1 TABLET, QID
     Dates: end: 201304
  2. OXYNEO 40 MG [Suspect]
     Indication: RHEUMATOID ARTHRITIS
  3. SPIRIVA [Concomitant]
     Indication: DYSPNOEA
     Dosage: UNK
  4. ADVAIR [Concomitant]
     Indication: DYSPNOEA
     Dosage: UNK
  5. APO-SALVENT                        /00139501/ [Concomitant]
     Indication: DYSPNOEA

REACTIONS (6)
  - Suicidal ideation [Recovered/Resolved]
  - Drug dependence [Not Recovered/Not Resolved]
  - Drug withdrawal syndrome [Not Recovered/Not Resolved]
  - Drug ineffective [Unknown]
  - Hyperhidrosis [Not Recovered/Not Resolved]
  - Pain [Not Recovered/Not Resolved]
